FAERS Safety Report 16899100 (Version 1)
Quarter: 2019Q4

REPORT INFORMATION
  Report Type: Report from Study
  Country: US (occurrence: US)
  Receive Date: 20191009
  Receipt Date: 20191009
  Transmission Date: 20200122
  Serious: Yes (Other)
  Sender: FDA-Public Use
  Company Number: US-BAYER-2019-178823

PATIENT
  Sex: Male

DRUGS (1)
  1. BETASERON [Suspect]
     Active Substance: INTERFERON BETA-1B
     Indication: MULTIPLE SCLEROSIS
     Dosage: 0.25 MG, QOD
     Route: 058
     Dates: start: 1991

REACTIONS (8)
  - Asthenia [Recovering/Resolving]
  - Decreased interest [None]
  - Cellulitis [Not Recovered/Not Resolved]
  - Skin induration [Not Recovered/Not Resolved]
  - Product dose omission [None]
  - Injection site induration [None]
  - Depressed mood [None]
  - Multiple sclerosis relapse [Recovering/Resolving]

NARRATIVE: CASE EVENT DATE: 2000
